FAERS Safety Report 16441016 (Version 1)
Quarter: 2019Q3

REPORT INFORMATION
  Report Type: Spontaneous
  Country: US (occurrence: US)
  Receive Date: 20190617
  Receipt Date: 20190617
  Transmission Date: 20191004
  Serious: Yes (Other)
  Sender: FDA-Public Use
  Company Number: None

PATIENT
  Age: 58 Year
  Sex: Female
  Weight: 62.55 kg

DRUGS (6)
  1. LEVOTHYROXIN 112 MCG/DAY [Concomitant]
  2. MULTI VITAMIN [Concomitant]
     Active Substance: VITAMINS
  3. FISH OIL SUPPLEMENT [Concomitant]
     Active Substance: FISH OIL
  4. 2,000 IU VITAMIN D [Concomitant]
  5. ALENDRONATE SODIUM. [Suspect]
     Active Substance: ALENDRONATE SODIUM
     Indication: OSTEOPOROSIS
     Dosage: ?          QUANTITY:1 TABLET(S);OTHER FREQUENCY:ONCE PER WEEK;?
     Route: 048
     Dates: start: 20190309
  6. 1200 MG CALCIUM PER DAY [Concomitant]

REACTIONS (4)
  - Wrist fracture [None]
  - Fall [None]
  - Dizziness [None]
  - Arthralgia [None]

NARRATIVE: CASE EVENT DATE: 20190309
